FAERS Safety Report 10581490 (Version 1)
Quarter: 2014Q4

REPORT INFORMATION
  Report Type: Spontaneous
  Country: US (occurrence: None)
  Receive Date: 20141112
  Receipt Date: 20141112
  Transmission Date: 20150529
  Serious: Yes (Hospitalization, Other)
  Sender: FDA-Public Use
  Company Number: None

PATIENT

DRUGS (1)
  1. MAGNESIUM SULFATE 2 GRMS /HR [Suspect]
     Active Substance: MAGNESIUM SULFATE
     Indication: PREMATURE LABOUR
     Dosage: 2 GMSR/HR, MORE THAN 24 HRS, INTO VEIN, GIVEN THREE DIFF TIMES

REACTIONS (7)
  - Pain in extremity [None]
  - Clavicle fracture [None]
  - Arthralgia [None]
  - Bone cyst [None]
  - Fall [None]
  - Deformity thorax [None]
  - Maternal drugs affecting foetus [None]
